FAERS Safety Report 6255208-X (Version None)
Quarter: 2009Q2

REPORT INFORMATION
  Report Type: 
  Country: None (occurrence: None)
  Receive Date: 20090630
  Receipt Date: 20090618
  Transmission Date: 20091009
  Serious: Yes (Hospitalization)
  Sender: FDA-Public Use
  Company Number: GXKR2009GB07074

PATIENT
  Sex: Female

DRUGS (3)
  1. DICLOFENAC (NGX) (DICLOFENAC) UNKNOWN [Suspect]
     Indication: PAIN
  2. RIVAROXABAN [Suspect]
     Indication: DRUG USE FOR UNKNOWN INDICATION
     Dosage: 10 MG/DAY, ORAL
     Route: 048
     Dates: end: 20090513
  3. RIVAROXABAN [Suspect]
     Indication: KNEE ARTHROPLASTY
     Dosage: 10 MG/DAY, ORAL
     Route: 048
     Dates: end: 20090513

REACTIONS (7)
  - ABDOMINAL DISCOMFORT [None]
  - CONTUSION [None]
  - DYSPEPSIA [None]
  - GASTROOESOPHAGEAL REFLUX DISEASE [None]
  - JOINT SWELLING [None]
  - POST PROCEDURAL HAEMORRHAGE [None]
  - WOUND SECRETION [None]
